FAERS Safety Report 9046463 (Version 1)
Quarter: 2013Q1

REPORT INFORMATION
  Report Type: Report from Study
  Country: US (occurrence: US)
  Receive Date: 20130130
  Receipt Date: 20130130
  Transmission Date: 20140127
  Serious: No
  Sender: FDA-Public Use
  Company Number: US-ABBOTT-12P-163-0973141-00

PATIENT
  Age: 49 Year
  Sex: Female

DRUGS (5)
  1. HUMIRA 40 MG/0.8 ML PEN [Suspect]
     Indication: RHEUMATOID ARTHRITIS
     Dates: start: 201208
  2. LEVOXYL [Concomitant]
     Indication: HYPOTHYROIDISM
     Dosage: 150 MG DAILY
  3. METFORMIN [Concomitant]
     Indication: DIABETES MELLITUS
     Dosage: 750 MG X 3 TABLETS DAILY
  4. PRILOSEC [Concomitant]
     Indication: PROPHYLAXIS AGAINST GASTROINTESTINAL ULCER
     Dosage: 20 MG DAILY
  5. NAPROXYN [Concomitant]
     Indication: PAIN
     Dosage: 2 TABLETS DAILY

REACTIONS (1)
  - Wrong technique in drug usage process [Recovered/Resolved]
